FAERS Safety Report 5925664-2 (Version None)
Quarter: 2008Q4

REPORT INFORMATION
  Report Type: 
  Country: None (occurrence: None)
  Receive Date: 20081016
  Receipt Date: 20081006
  Transmission Date: 20090506
  Serious: Yes (Hospitalization)
  Sender: FDA-Public Use
  Company Number: GXKR2008IT09660

PATIENT
  Sex: Male

DRUGS (1)
  1. CALCIUM FOLINATE (NGX) (FOLINIC ACID) UNKOWN [Suspect]

REACTIONS (3)
  - EMBOLISM [None]
  - MUSCULOSKELETAL PAIN [None]
  - SWELLING [None]
